FAERS Safety Report 8763736 (Version 1)
Quarter: 2012Q4

REPORT INFORMATION
  Report Type: 
  Country: US (occurrence: None)
  Receive Date: 20120828
  Receipt Date: 20120828
  Transmission Date: 20130627
  Serious: Yes (Congenital Anomaly)
  Sender: FDA-Public Use
  Company Number: 2012MA010162

PATIENT
  Sex: Female

DRUGS (4)
  1. VINORELBINE INJECTION USP, 10MG/ML PACKAGED IN 10MG/ML (ATLLC) [Suspect]
     Indication: HEPATIC METASTASES
     Dosage: 25 mg/mm3
  2. TRASTUZUMAB [Suspect]
     Indication: HEPATIC METASTASES
  3. PACLITAXEL [Concomitant]
  4. 5-FU [Concomitant]

REACTIONS (5)
  - Pregnancy [None]
  - Maternal exposure during pregnancy [None]
  - Metastases to liver [None]
  - Oligohydramnios [None]
  - Premature delivery [None]
